FAERS Safety Report 8504517 (Version 2)
Quarter: 2014Q2

REPORT INFORMATION
  Report Type: Spontaneous
  Country: GB (occurrence: GB)
  Receive Date: 20120411
  Receipt Date: 20140630
  Transmission Date: 20141212
  Serious: Yes (Death, Other)
  Sender: FDA-Public Use
  Company Number: GB-JNJFOC-20120403315

PATIENT
  Sex: 0

DRUGS (27)
  1. DOXORUBICIN [Suspect]
     Indication: HODGKIN^S DISEASE
     Route: 042
  2. DOXORUBICIN [Suspect]
     Indication: HODGKIN^S DISEASE
     Route: 042
  3. DOXORUBICIN [Suspect]
     Indication: HODGKIN^S DISEASE
     Route: 042
  4. DOXORUBICIN [Suspect]
     Indication: HODGKIN^S DISEASE
     Route: 042
  5. DOXORUBICIN [Suspect]
     Indication: HODGKIN^S DISEASE
     Route: 042
  6. DOXORUBICIN [Suspect]
     Indication: HODGKIN^S DISEASE
     Route: 042
  7. VINCRISTINE [Suspect]
     Indication: HODGKIN^S DISEASE
     Route: 042
  8. VINCRISTINE [Suspect]
     Indication: HODGKIN^S DISEASE
     Route: 042
  9. VINCRISTINE [Suspect]
     Indication: HODGKIN^S DISEASE
     Route: 042
  10. DACARBAZINE [Suspect]
     Indication: HODGKIN^S DISEASE
     Route: 042
  11. DACARBAZINE [Suspect]
     Indication: HODGKIN^S DISEASE
     Route: 042
  12. DACARBAZINE [Suspect]
     Indication: HODGKIN^S DISEASE
     Route: 042
  13. CHLORAMBUCIL [Suspect]
     Indication: HODGKIN^S DISEASE
     Route: 048
  14. CHLORAMBUCIL [Suspect]
     Indication: HODGKIN^S DISEASE
     Route: 048
  15. CHLORAMBUCIL [Suspect]
     Indication: HODGKIN^S DISEASE
     Route: 048
  16. VINBLASTINE [Suspect]
     Indication: HODGKIN^S DISEASE
     Route: 042
  17. VINBLASTINE [Suspect]
     Indication: HODGKIN^S DISEASE
     Route: 042
  18. VINBLASTINE [Suspect]
     Indication: HODGKIN^S DISEASE
     Route: 042
  19. PROCARBAZINE [Suspect]
     Indication: HODGKIN^S DISEASE
     Route: 048
  20. PROCARBAZINE [Suspect]
     Indication: HODGKIN^S DISEASE
     Route: 048
  21. PROCARBAZINE [Suspect]
     Indication: HODGKIN^S DISEASE
     Route: 048
  22. PREDNISOLONE [Suspect]
     Indication: HODGKIN^S DISEASE
     Route: 048
  23. PREDNISOLONE [Suspect]
     Indication: HODGKIN^S DISEASE
     Route: 048
  24. PREDNISOLONE [Suspect]
     Indication: HODGKIN^S DISEASE
     Route: 048
  25. BLEOMYCIN [Suspect]
     Indication: HODGKIN^S DISEASE
     Route: 042
  26. BLEOMYCIN [Suspect]
     Indication: HODGKIN^S DISEASE
     Route: 042
  27. BLEOMYCIN [Suspect]
     Indication: HODGKIN^S DISEASE
     Route: 042

REACTIONS (5)
  - Hodgkin^s disease [Fatal]
  - Cardiopulmonary failure [Unknown]
  - Anaphylactic reaction [Unknown]
  - Hodgkin^s disease [Unknown]
  - Neutropenia [Unknown]
